FAERS Safety Report 21811159 (Version 4)
Quarter: 2025Q4

REPORT INFORMATION
  Report Type: Spontaneous
  Country: US (occurrence: US)
  Receive Date: 20230103
  Receipt Date: 20251022
  Transmission Date: 20260117
  Serious: Yes (Life-Threatening, Hospitalization, Other)
  Sender: PFIZER
  Company Number: US-PFIZER INC-PV202200133493

PATIENT
  Age: 6 Decade
  Sex: Female

DRUGS (2)
  1. LEVOFLOXACIN [Suspect]
     Active Substance: LEVOFLOXACIN
     Indication: Pyelonephritis chronic
     Dosage: 7 G, SINGLE (UNINTENTIONALLY TOOK THE ENTIRE BOTTLE OF 14 TABLETS)
     Route: 048
  2. LEVOFLOXACIN [Suspect]
     Active Substance: LEVOFLOXACIN
     Dosage: 500 MG, DAILY (FILLED A 2-WEEK PRESCRIPTION)
     Route: 048

REACTIONS (20)
  - Accidental overdose [Recovered/Resolved]
  - Transient ischaemic attack [Recovered/Resolved]
  - Hemiparesis [Recovered/Resolved]
  - Lacunar stroke [Recovered/Resolved]
  - Toxic neuropathy [Recovered/Resolved]
  - Hemiparaesthesia [Recovered/Resolved]
  - Nausea [Recovered/Resolved]
  - Flushing [Recovered/Resolved]
  - Dizziness [Recovered/Resolved]
  - Muscular weakness [Recovered/Resolved]
  - Creatinine renal clearance decreased [Recovered/Resolved]
  - Muscle rigidity [Recovered/Resolved]
  - Muscle spasms [Recovered/Resolved]
  - Tremor [Recovered/Resolved]
  - Anxiety [Recovered/Resolved]
  - Blood pH increased [Recovered/Resolved]
  - PCO2 decreased [Recovered/Resolved]
  - Blood lactic acid increased [Recovered/Resolved]
  - PO2 increased [Recovered/Resolved]
  - Electrocardiogram QT shortened [Recovered/Resolved]
